FAERS Safety Report 11492846 (Version 6)
Quarter: 2016Q1

REPORT INFORMATION
  Report Type: Report from Study
  Country: CA (occurrence: CA)
  Receive Date: 20150911
  Receipt Date: 20160311
  Transmission Date: 20160525
  Serious: Yes (Other)
  Sender: FDA-Public Use
  Company Number: CA-ROCHE-1433891

PATIENT
  Age: 62 Year
  Sex: Male

DRUGS (14)
  1. FERROUS GLUCONATE [Concomitant]
     Active Substance: FERROUS GLUCONATE
  2. AMLODIPINE BESYLATE. [Concomitant]
     Active Substance: AMLODIPINE BESYLATE
  3. ROSUVASTATIN CALCIUM. [Concomitant]
     Active Substance: ROSUVASTATIN CALCIUM
  4. METFORMIN [Concomitant]
     Active Substance: METFORMIN HYDROCHLORIDE
  5. AMITRIPTYLINE [Concomitant]
     Active Substance: AMITRIPTYLINE
  6. METHOTREXATE [Concomitant]
     Active Substance: METHOTREXATE
  7. FOLIC ACID. [Concomitant]
     Active Substance: FOLIC ACID
  8. RITUXAN [Suspect]
     Active Substance: RITUXIMAB
     Indication: RHEUMATOID ARTHRITIS
     Dosage: RECEIVED ON : 26/AUG/2013 AND 10/JUL/2014
     Route: 042
     Dates: start: 20130807
  9. ACETAMINOPHEN. [Concomitant]
     Active Substance: ACETAMINOPHEN
     Route: 048
     Dates: start: 20130807
  10. DURAGESIC (CANADA) [Concomitant]
     Route: 065
  11. PREDNISONE. [Concomitant]
     Active Substance: PREDNISONE
  12. BENADRYL [Concomitant]
     Active Substance: DIPHENHYDRAMINE HYDROCHLORIDE
     Route: 048
     Dates: start: 20130807
  13. ALENDRONATE SODIUM/CHOLECALCIFEROL [Concomitant]
  14. TRAMCET [Concomitant]
     Active Substance: ACETAMINOPHEN\TRAMADOL

REACTIONS (6)
  - Hypotension [Unknown]
  - Neoplasm malignant [Unknown]
  - Blood pressure increased [Unknown]
  - Sensation of foreign body [Not Recovered/Not Resolved]
  - Blood pressure fluctuation [Unknown]
  - Cough [Not Recovered/Not Resolved]

NARRATIVE: CASE EVENT DATE: 20140710
